FAERS Safety Report 23551187 (Version 1)
Quarter: 2024Q1

REPORT INFORMATION
  Report Type: Spontaneous
  Country: DE (occurrence: None)
  Receive Date: 20240222
  Receipt Date: 20240222
  Transmission Date: 20240410
  Serious: Yes (Hospitalization)
  Sender: FDA-Public Use
  Company Number: DE-ROCHE-3509683

PATIENT
  Sex: Male

DRUGS (3)
  1. OCREVUS [Suspect]
     Active Substance: OCRELIZUMAB
     Indication: Secondary progressive multiple sclerosis
     Route: 065
     Dates: start: 2019
  2. PONVORY [Concomitant]
     Active Substance: PONESIMOD
  3. ZEPOSIA [Concomitant]
     Active Substance: OZANIMOD HYDROCHLORIDE

REACTIONS (3)
  - Malignant melanoma [Unknown]
  - Lymphocyte count decreased [Unknown]
  - Off label use [Unknown]
